FAERS Safety Report 13486534 (Version 4)
Quarter: 2017Q2

REPORT INFORMATION
  Report Type: Report from Study
  Country: US (occurrence: US)
  Receive Date: 20170426
  Receipt Date: 20170623
  Transmission Date: 20170830
  Serious: Yes (Hospitalization, Other)
  Sender: FDA-Public Use
  Company Number: US-GILEAD-2017-0269474

PATIENT
  Age: 53 Year
  Sex: Male

DRUGS (18)
  1. ADVAIR HFA [Concomitant]
     Active Substance: FLUTICASONE PROPIONATE\SALMETEROL XINAFOATE
  2. SYNTHROID [Concomitant]
     Active Substance: LEVOTHYROXINE SODIUM
  3. VENLAFAXINE [Concomitant]
     Active Substance: VENLAFAXINE HYDROCHLORIDE
  4. AMBRISENTAN [Suspect]
     Active Substance: AMBRISENTAN
     Indication: CONGENITAL PULMONARY VALVE ATRESIA
  5. ATENOLOL. [Concomitant]
     Active Substance: ATENOLOL
  6. ATORVASTATIN [Concomitant]
     Active Substance: ATORVASTATIN
  7. IBUPROFEN. [Concomitant]
     Active Substance: IBUPROFEN
  8. AMOXICILLIN. [Concomitant]
     Active Substance: AMOXICILLIN
  9. SPIRIVA [Concomitant]
     Active Substance: TIOTROPIUM BROMIDE MONOHYDRATE
  10. XOPENEX [Concomitant]
     Active Substance: LEVALBUTEROL HYDROCHLORIDE
  11. ACETAMINOPHEN. [Concomitant]
     Active Substance: ACETAMINOPHEN
  12. IMODIUM A-D [Concomitant]
     Active Substance: LOPERAMIDE HYDROCHLORIDE
  13. AMBRISENTAN [Suspect]
     Active Substance: AMBRISENTAN
     Indication: PULMONARY HYPERTENSION
     Dosage: 5 MG, QD
     Route: 048
  14. ATENOLOL. [Concomitant]
     Active Substance: ATENOLOL
  15. DIOVAN [Concomitant]
     Active Substance: VALSARTAN
  16. TAMSULOSIN [Concomitant]
     Active Substance: TAMSULOSIN
  17. LASIX [Concomitant]
     Active Substance: FUROSEMIDE
  18. ZYRTEC [Concomitant]
     Active Substance: CETIRIZINE HYDROCHLORIDE

REACTIONS (2)
  - Ventricular arrhythmia [Not Recovered/Not Resolved]
  - Syncope [Unknown]

NARRATIVE: CASE EVENT DATE: 20170331
